FAERS Safety Report 5251646-2 (Version None)
Quarter: 2007Q1

REPORT INFORMATION
  Report Type: 
  Country: None (occurrence: None)
  Receive Date: 20070228
  Receipt Date: 20061002
  Transmission Date: 20070707
  Serious: No
  Sender: FDA-Public Use
  Company Number: US-GLAXOSMITHKLINE-A0622111A

PATIENT
  Age: 85 Year
  Sex: Female

DRUGS (7)
  1. LAMICTAL [Suspect]
     Dosage: 200MG PER DAY
     Route: 048
     Dates: start: 20060501
  2. LOTREL [Concomitant]
  3. INDAPAMIDE [Concomitant]
  4. MECLIZINE [Concomitant]
  5. LORAZEPAM [Concomitant]
  6. VITAMIN E [Concomitant]
  7. ASCORBIC ACID [Concomitant]

REACTIONS (2)
  - BREAST PAIN [None]
  - BREAST TENDERNESS [None]
